FAERS Safety Report 5208522-0 (Version None)
Quarter: 2007Q1

REPORT INFORMATION
  Report Type: 
  Country: None (occurrence: None)
  Receive Date: 20070115
  Receipt Date: 20070110
  Transmission Date: 20070707
  Serious: Yes (Other)
  Sender: FDA-Public Use
  Company Number: US-ROXANE LABORATORIES, INC-2007-BP-00433RO

PATIENT
  Age: 65 Year
  Sex: Male

DRUGS (5)
  1. CITALOPRAM HYDROBROMIDE [Suspect]
     Indication: DEPRESSION
     Dosage: 20 MG QD
  2. CITALOPRAM HYDROBROMIDE [Suspect]
  3. ARIPIPRAZOLE [Suspect]
     Indication: PSYCHOTIC DISORDER
  4. ACETAMINOPHEN [Concomitant]
  5. OMEPRAZOLE [Concomitant]

REACTIONS (4)
  - BLADDER DISTENSION [None]
  - DYSURIA [None]
  - MICTURITION DISORDER [None]
  - URINE OUTPUT DECREASED [None]
